FAERS Safety Report 8803957 (Version 1)
Quarter: 2012Q4

REPORT INFORMATION
  Report Type: 
  Country: FR (occurrence: FR)
  Receive Date: 20120923
  Receipt Date: 20120923
  Transmission Date: 20130627
  Serious: Yes (Other)
  Sender: FDA-Public Use
  Company Number: FR-MYLANLABS-2012S1018720

PATIENT
  Age: 89 Year
  Sex: Female

DRUGS (10)
  1. CIPROFLOXACIN [Suspect]
     Indication: URINARY TRACT INFECTION
     Route: 048
     Dates: start: 20120601, end: 20120603
  2. PREVISCAN [Suspect]
     Indication: PRODUCT USED FOR UNKNOWN INDICATION
     Route: 048
     Dates: end: 20120604
  3. PREVISCAN [Suspect]
     Indication: PRODUCT USED FOR UNKNOWN INDICATION
     Route: 048
     Dates: start: 20120609
  4. TAZOCILLINE [Suspect]
     Indication: URINARY TRACT INFECTION
     Route: 048
     Dates: start: 20120601, end: 20120603
  5. AMOXICILLIN AND CALVULANATE POTASSIUM [Suspect]
     Indication: URINARY TRACT INFECTION
     Route: 048
     Dates: start: 20120529, end: 20120601
  6. ATARAX [Concomitant]
     Indication: PRODUCT USED FOR UNKNOWN INDICATION
  7. SEROPLEX [Concomitant]
     Indication: PRODUCT USED FOR UNKNOWN INDICATION
  8. DIFFU K [Concomitant]
     Indication: PRODUCT USED FOR UNKNOWN INDICATION
  9. LASILIX [Concomitant]
     Indication: PRODUCT USED FOR UNKNOWN INDICATION
  10. CARDENSIEL [Concomitant]
     Indication: PRODUCT USED FOR UNKNOWN INDICATION

REACTIONS (3)
  - International normalised ratio increased [Recovered/Resolved]
  - Gingival bleeding [Recovered/Resolved]
  - Haematuria [Recovered/Resolved]
